FAERS Safety Report 4448882-1 (Version None)
Quarter: 2004Q3

REPORT INFORMATION
  Report Type: 
  Country: None (occurrence: None)
  Receive Date: 20040909
  Receipt Date: 20040901
  Transmission Date: 20050211
  Serious: Yes (Hospitalization)
  Sender: FDA-Public Use
  Company Number: US-JNJFOC-20040900714

PATIENT
  Age: 85 Year
  Sex: Female

DRUGS (11)
  1. PEPCID AC [Suspect]
     Indication: DYSPEPSIA
     Dosage: 10-30 MG, QD
     Dates: start: 20040825
  2. ACIPHEX [Concomitant]
  3. GLYNASE [Concomitant]
  4. COREG [Concomitant]
  5. SYNTHROID [Concomitant]
  6. LIPITOR [Concomitant]
  7. COZAAR [Concomitant]
  8. PLENDIL [Concomitant]
  9. LASIX [Concomitant]
  10. KLOR-CON [Concomitant]
  11. SINGULAIR [Concomitant]

REACTIONS (3)
  - BLOOD GLUCOSE INCREASED [None]
  - DYSPEPSIA [None]
  - URINE OUTPUT DECREASED [None]
